FAERS Safety Report 5063959-8 (Version None)
Quarter: 2006Q3

REPORT INFORMATION
  Report Type: 
  Country: None (occurrence: None)
  Receive Date: 20060727
  Receipt Date: 20060710
  Transmission Date: 20061208
  Serious: Yes (Hospitalization)
  Sender: FDA-Public Use
  Company Number: FR-MERCK-0607FRA00020

PATIENT
  Age: 64 Year
  Sex: Female
  Weight: 74 kg

DRUGS (3)
  1. ZETIA [Suspect]
     Indication: HYPERCHOLESTEROLAEMIA
     Route: 048
     Dates: start: 20051201, end: 20060501
  2. ALPRAZOLAM [Concomitant]
     Route: 048
  3. NIFUROXAZIDE [Concomitant]
     Route: 048

REACTIONS (1)
  - EOSINOPHILIC CELLULITIS [None]
